FAERS Safety Report 7130547-9 (Version None)
Quarter: 2010Q4

REPORT INFORMATION
  Report Type: 
  Country: None (occurrence: None)
  Receive Date: 20101201
  Receipt Date: 20101123
  Transmission Date: 20110411
  Serious: Yes (Life-Threatening, Hospitalization)
  Sender: FDA-Public Use
  Company Number: PHHO2010HK16009

PATIENT
  Sex: Female
  Weight: 48 kg

DRUGS (6)
  1. AFINITOR [Suspect]
     Indication: METASTATIC RENAL CELL CARCINOMA
     Dosage: 10 MG, QD
     Route: 048
     Dates: start: 20100915, end: 20101028
  2. AFINITOR [Suspect]
     Dosage: UNK
     Dates: start: 20101118
  3. METOPROLOL TARTRATE [Concomitant]
  4. CODEINE PHOSPHATE [Concomitant]
  5. TRANEXAMIC ACID [Concomitant]
  6. DIMETHYL POLYSILOXANE [Concomitant]

REACTIONS (7)
  - CHEST PAIN [None]
  - DYSPNOEA [None]
  - EMPYEMA DRAINAGE [None]
  - MYOCARDIAL INFARCTION [None]
  - PLEURAL EFFUSION [None]
  - PYOTHORAX [None]
  - PYREXIA [None]
